FAERS Safety Report 7271080-3 (Version None)
Quarter: 2011Q1

REPORT INFORMATION
  Report Type: 
  Country: None (occurrence: None)
  Receive Date: 20110202
  Receipt Date: 20110131
  Transmission Date: 20110831
  Serious: Yes (Death)
  Sender: FDA-Public Use
  Company Number: JP-PFIZER INC-2011021221

PATIENT
  Sex: Male
  Weight: 55 kg

DRUGS (6)
  1. SERTRALINE HYDROCHLORIDE [Suspect]
     Dosage: 50 MG/DAY
     Dates: start: 20090630, end: 20090713
  2. MYSLEE [Concomitant]
     Indication: DEPRESSION
     Dosage: 5 MG/DAY
     Route: 048
     Dates: start: 20090728
  3. SERTRALINE HYDROCHLORIDE [Suspect]
     Indication: DEPRESSION
     Dosage: 25 MG/DAY
     Dates: start: 20090623, end: 20090629
  4. SERTRALINE HYDROCHLORIDE [Suspect]
     Dosage: 100 MG/DAY
     Dates: start: 20090811
  5. SERTRALINE HYDROCHLORIDE [Suspect]
     Dosage: 75 MG/DAY
     Dates: start: 20090714, end: 20090810
  6. SEPAZON [Concomitant]
     Indication: DEPRESSION
     Dosage: 2 MG, 3X/DAY
     Route: 048
     Dates: start: 20091027

REACTIONS (1)
  - DEATH [None]
